FAERS Safety Report 4811085-2 (Version None)
Quarter: 2005Q4

REPORT INFORMATION
  Report Type: 
  Country: None (occurrence: None)
  Receive Date: 20051025
  Receipt Date: 20051010
  Transmission Date: 20060501
  Serious: Yes (Life-Threatening, Hospitalization, Other)
  Sender: FDA-Public Use
  Company Number: 2005-02100

PATIENT
  Age: 54 Year
  Sex: Female

DRUGS (5)
  1. VELCADE [Suspect]
     Indication: WALDENSTROM'S MACROGLOBULINAEMIA
     Dosage: SEE IMAGE
     Route: 042
     Dates: start: 20040312
  2. VELCADE [Suspect]
     Indication: WALDENSTROM'S MACROGLOBULINAEMIA
     Dosage: SEE IMAGE
     Route: 042
     Dates: start: 20040405
  3. VANCOMYCIN [Concomitant]
  4. ZOMETA [Concomitant]
  5. LEVAQUIN [Concomitant]

REACTIONS (7)
  - BACK PAIN [None]
  - BLOOD CULTURE POSITIVE [None]
  - NECK PAIN [None]
  - PYREXIA [None]
  - SHOULDER PAIN [None]
  - STAPHYLOCOCCAL INFECTION [None]
  - VASCULITIS [None]
